FAERS Safety Report 6711250-3 (Version None)
Quarter: 2010Q2

REPORT INFORMATION
  Report Type: 
  Country: None (occurrence: None)
  Receive Date: 20100505
  Receipt Date: 20100503
  Transmission Date: 20101027
  Serious: Yes (Hospitalization, Other)
  Sender: FDA-Public Use
  Company Number: KP-ROXANE LABORATORIES, INC.-2010-RO-00510RO

PATIENT
  Age: 65 Year
  Sex: Male

DRUGS (8)
  1. DEXAMETHASONE [Suspect]
     Indication: MULTIPLE MYELOMA
  2. DEXAMETHASONE [Suspect]
     Indication: BONE PAIN
     Dosage: 40 MG
  3. PREDNISONE [Suspect]
     Indication: MULTIPLE MYELOMA
  4. VINCRISTINE [Suspect]
     Indication: MULTIPLE MYELOMA
  5. DOXORUBICIN HCL [Suspect]
     Indication: MULTIPLE MYELOMA
  6. MELPHALAN HYDROCHLORIDE [Suspect]
     Indication: MULTIPLE MYELOMA
  7. THALIDOMIDE [Suspect]
     Indication: BONE PAIN
     Dosage: 200 MG
  8. THALIDOMIDE [Suspect]
     Dosage: 400 MG

REACTIONS (2)
  - BONE PAIN [None]
  - TOXIC EPIDERMAL NECROLYSIS [None]
